FAERS Safety Report 15724487 (Version 2)
Quarter: 2019Q2

REPORT INFORMATION
  Report Type: Report from Study
  Country: None (occurrence: AU)
  Receive Date: 20181214
  Receipt Date: 20190401
  Transmission Date: 20190711
  Serious: Yes (Other)
  Sender: FDA-Public Use
  Company Number: AU-ABBVIE-18S-008-2587069-00

PATIENT
  Sex: Male

DRUGS (3)
  1. LUCRIN DEPOT [Suspect]
     Active Substance: LEUPROLIDE ACETATE
     Route: 030
     Dates: start: 20170920, end: 20170920
  2. LUCRIN DEPOT [Suspect]
     Active Substance: LEUPROLIDE ACETATE
     Route: 030
     Dates: start: 20181203
  3. LUCRIN DEPOT [Suspect]
     Active Substance: LEUPROLIDE ACETATE
     Indication: PROSTATE CANCER
     Route: 030
     Dates: start: 2015

REACTIONS (8)
  - Dehydration [Unknown]
  - Fatigue [Unknown]
  - Arthritis [Recovered/Resolved]
  - Urinary bladder haemorrhage [Recovering/Resolving]
  - Bladder injury [Unknown]
  - Gastrointestinal injury [Unknown]
  - Bladder disorder [Not Recovered/Not Resolved]
  - Weight increased [Not Recovered/Not Resolved]
